FAERS Safety Report 7996333-2 (Version None)
Quarter: 2011Q4

REPORT INFORMATION
  Report Type: 
  Country: None (occurrence: None)
  Receive Date: 20111220
  Receipt Date: 20111207
  Transmission Date: 20120403
  Serious: Yes (Hospitalization, Other)
  Sender: FDA-Public Use
  Company Number: US-ELI_LILLY_AND_COMPANY-US201108009080

PATIENT
  Sex: Female

DRUGS (12)
  1. FLUOXETINE HYDROCHLORIDE [Concomitant]
     Dosage: 40 MG, UNK
  2. OXYCONTIN [Concomitant]
     Dosage: 20 MG, QD
  3. GABAPENTIN [Concomitant]
     Dosage: 400 MG, QD
  4. CLONAZEPAM [Concomitant]
     Dosage: 0.5 MG, QD
  5. OXYBUTYNIN [Concomitant]
     Dosage: 10 MG, QD
  6. OXYCODONE AND ACETAMINOPHEN [Concomitant]
  7. CALCIUM [Concomitant]
     Dosage: 1200 MG, UNK
  8. DOCUSATE SODIUM [Concomitant]
     Dosage: 100 MG, OTHER
  9. FORTEO [Suspect]
     Indication: OSTEOPOROSIS
     Dosage: 20 UG, QD
     Dates: start: 20101101
  10. VITAMIN D [Concomitant]
     Dosage: 50000 IU, UNK
  11. LEVETIRACETAM [Concomitant]
     Dosage: 500 MG, BID
  12. ZYRTEC [Concomitant]
     Dosage: 10 MG, UNK

REACTIONS (12)
  - DEVICE BREAKAGE [None]
  - TREMOR [None]
  - FEELING OF BODY TEMPERATURE CHANGE [None]
  - INFECTION [None]
  - PROCEDURAL PAIN [None]
  - NEPHROLITHIASIS [None]
  - SURGERY [None]
  - ASTHENIA [None]
  - URINARY TRACT INFECTION [None]
  - INCOHERENT [None]
  - DELUSION [None]
  - OEDEMA PERIPHERAL [None]
